FAERS Safety Report 21189610 (Version 1)
Quarter: 2022Q3

REPORT INFORMATION
  Report Type: Spontaneous
  Country: CN (occurrence: CN)
  Receive Date: 20220809
  Receipt Date: 20220809
  Transmission Date: 20221027
  Serious: Yes (Hospitalization)
  Sender: FDA-Public Use
  Company Number: CN-JNJFOC-20220810626

PATIENT
  Age: 59 Year
  Sex: Male

DRUGS (3)
  1. ACETAMINOPHEN [Suspect]
     Active Substance: ACETAMINOPHEN
     Indication: Back pain
     Route: 048
  2. ACETAMINOPHEN [Suspect]
     Active Substance: ACETAMINOPHEN
     Indication: Pain in extremity
     Route: 048
  3. ACETAMINOPHEN [Suspect]
     Active Substance: ACETAMINOPHEN
     Indication: Back pain

REACTIONS (6)
  - End stage renal disease [Recovering/Resolving]
  - Nephropathy toxic [Recovering/Resolving]
  - Drug-induced liver injury [Recovering/Resolving]
  - Renal cyst [Recovering/Resolving]
  - Intervertebral disc protrusion [Recovering/Resolving]
  - Off label use [Unknown]
